FAERS Safety Report 9818477 (Version 1)
Quarter: 2014Q1

REPORT INFORMATION
  Report Type: Spontaneous
  Country: US (occurrence: US)
  Receive Date: 20140115
  Receipt Date: 20140115
  Transmission Date: 20141002
  Serious: No
  Sender: FDA-Public Use
  Company Number: US-PFIZER INC-2014011853

PATIENT
  Age: 74 Year
  Sex: Female
  Weight: 81.63 kg

DRUGS (3)
  1. CELEBREX [Suspect]
     Indication: ARTHRITIS
     Dosage: 200 MG, 1X/DAY
     Route: 048
  2. PROTONIX [Suspect]
     Dosage: UNK
  3. ARICEPT [Concomitant]
     Dosage: 5 MG, UNK

REACTIONS (1)
  - Pain [Unknown]
